FAERS Safety Report 4471550-7 (Version None)
Quarter: 2004Q4

REPORT INFORMATION
  Report Type: 
  Country: None (occurrence: None)
  Receive Date: 20041006
  Receipt Date: 20040923
  Transmission Date: 20050328
  Serious: Yes (Hospitalization)
  Sender: FDA-Public Use
  Company Number: 205278

PATIENT
  Age: 44 Year
  Sex: Female
  Weight: 48.5349 kg

DRUGS (3)
  1. AVONEX [Suspect]
     Indication: MULTIPLE SCLEROSIS
     Dosage: 30 MCG QW, IM
     Route: 030
     Dates: start: 19960101
  2. AVONEX [Suspect]
     Indication: MULTIPLE SCLEROSIS
     Dosage: 30 MCG QW, IM
     Route: 030
     Dates: start: 20030101
  3. VITAMIN E [Concomitant]

REACTIONS (8)
  - BLADDER DISORDER [None]
  - CEREBROVASCULAR ACCIDENT [None]
  - CONVULSION [None]
  - FALL [None]
  - HEMIPARESIS [None]
  - HYPERTENSION [None]
  - HYPOAESTHESIA [None]
  - MUSCLE CRAMP [None]
